FAERS Safety Report 19693752 (Version 1)
Quarter: 2021Q3

REPORT INFORMATION
  Report Type: Spontaneous
  Country: US (occurrence: US)
  Receive Date: 20210813
  Receipt Date: 20210813
  Transmission Date: 20211014
  Serious: No
  Sender: FDA-Public Use
  Company Number: US-DRREDDYS-SPO/USA/21/0138807

PATIENT
  Age: 38 Year
  Sex: Female
  Weight: 67.5 kg

DRUGS (3)
  1. SUMATRIPTAN INJECTION USP, 6 MG/0.5 ML [Suspect]
     Active Substance: SUMATRIPTAN
     Dosage: (6MG/0.5ML) INJECTION ON ONSET OF AURA (MAY REPEAT 2 HOURS LATER)
  2. SUMATRIPTAN INJECTION USP, 6 MG/0.5 ML [Suspect]
     Active Substance: SUMATRIPTAN
     Indication: MIGRAINE
     Dosage: (6MG/0.5ML) INJECTION ON ONSET OF AURA (MAY REPEAT 2 HOURS LATER)
  3. SUMATRIPTAN INJECTION USP, 6 MG/0.5 ML [Suspect]
     Active Substance: SUMATRIPTAN
     Dosage: (6MG/0.5ML) INJECTION ON ONSET OF AURA (MAY REPEAT 2 HOURS LATER)

REACTIONS (2)
  - Product quality issue [Unknown]
  - Product dose omission issue [Unknown]
